FAERS Safety Report 23106589 (Version 1)
Quarter: 2023Q4

REPORT INFORMATION
  Report Type: Spontaneous
  Country: NL (occurrence: NL)
  Receive Date: 20231026
  Receipt Date: 20231026
  Transmission Date: 20240110
  Serious: Yes (Other)
  Sender: FDA-Public Use
  Company Number: NL-LRB-00914652

PATIENT
  Age: 72 Year
  Sex: Male
  Weight: 104 kg

DRUGS (11)
  1. LISINOPRIL [Suspect]
     Active Substance: LISINOPRIL
     Indication: Hypertension
     Dosage: 5 MILLIGRAM, ONCE A DAY (1DD1)
     Route: 065
     Dates: start: 20160101, end: 20231013
  2. LISINOPRIL [Suspect]
     Active Substance: LISINOPRIL
     Indication: Cardiac failure
  3. ZOLEDRONIC ACID [Suspect]
     Active Substance: ZOLEDRONIC ACID
     Indication: Osteoporosis
     Dosage: 5 MILLIGRAM
     Route: 065
     Dates: start: 20230929, end: 20230929
  4. ASPIRIN [Concomitant]
     Active Substance: ASPIRIN
     Indication: Product used for unknown indication
     Dosage: UNK (TABLET, 80 MG (MILLIGRAM))
     Route: 065
  5. BUDESONIDE [Concomitant]
     Active Substance: BUDESONIDE
     Indication: Product used for unknown indication
     Dosage: UNK (AEROSOL, 200/6 ?G/DOSIS (MICROGRAM PER DOSIS))
     Route: 065
  6. LATANOPROST [Concomitant]
     Active Substance: LATANOPROST
     Indication: Product used for unknown indication
     Dosage: UNK (EYE DROPS, 50 ?G/ML (MICROGRAM PER MILLILITER))
     Route: 065
  7. LISINOPRIL [Concomitant]
     Active Substance: LISINOPRIL
     Indication: Product used for unknown indication
     Dosage: UNK (TABLET, 5 MG (MILLIGRAM)
     Route: 065
  8. OMEPRAZOLE [Concomitant]
     Active Substance: OMEPRAZOLE
     Indication: Product used for unknown indication
     Dosage: UNK (GASTRO RESISTANT CAPSULE, 20 MG (MILLIGRAM)
     Route: 065
  9. ACETAMINOPHEN [Concomitant]
     Active Substance: ACETAMINOPHEN
     Indication: Product used for unknown indication
     Dosage: UNK (TABLET, 500 MG (MILLIGRAM))
     Route: 065
  10. SIMVASTATIN [Concomitant]
     Active Substance: SIMVASTATIN
     Indication: Product used for unknown indication
     Dosage: UNK(FILM COATED TABLET, 40 MG (MILLIGRAM)
     Route: 065
  11. TIMOLOL [Concomitant]
     Active Substance: TIMOLOL
     Indication: Product used for unknown indication
     Dosage: UNK (EYE DROP, 5/10 MG/ML (MILLIGRAM PER MILLILITER))
     Route: 065

REACTIONS (1)
  - Renal impairment [Not Recovered/Not Resolved]
